FAERS Safety Report 6333749-4 (Version None)
Quarter: 2009Q3

REPORT INFORMATION
  Report Type: 
  Country: None (occurrence: None)
  Receive Date: 20090829
  Receipt Date: 20090602
  Transmission Date: 20100115
  Serious: No
  Sender: FDA-Public Use
  Company Number: US-ABBOTT-09P-163-0577415-00

PATIENT
  Age: 62 Year
  Sex: Female

DRUGS (4)
  1. SIMCOR [Suspect]
     Indication: LOW DENSITY LIPOPROTEIN INCREASED
     Dosage: 500/20MG-1 TAB QHS FOR 2 WKS,THEN 2 TAB
     Route: 048
     Dates: start: 20090515, end: 20090601
  2. PREVACID [Concomitant]
     Indication: DRUG USE FOR UNKNOWN INDICATION
  3. SPIRIVA [Concomitant]
     Indication: DRUG USE FOR UNKNOWN INDICATION
  4. ASPIRIN [Concomitant]
     Indication: DRUG USE FOR UNKNOWN INDICATION
     Dosage: QHS
     Route: 048

REACTIONS (3)
  - MUSCLE SPASMS [None]
  - MUSCULOSKELETAL PAIN [None]
  - PAIN IN EXTREMITY [None]
